FAERS Safety Report 10952670 (Version 1)
Quarter: 2015Q1

REPORT INFORMATION
  Report Type: Spontaneous
  Country: US (occurrence: None)
  Receive Date: 20150323
  Receipt Date: 20150323
  Transmission Date: 20150721
  Serious: No
  Sender: FDA-Public Use
  Company Number: VIT-2014-02704

PATIENT
  Age: 68 Year
  Sex: Male
  Weight: 97 kg

DRUGS (13)
  1. TOPROL XL [Concomitant]
     Active Substance: METOPROLOL SUCCINATE
  2. TRICOR [Concomitant]
     Active Substance: FENOFIBRATE
  3. COUMADIN [Concomitant]
     Active Substance: WARFARIN SODIUM
  4. SENSIPAR (CINACALCET HYDROCHLORIDE) [Concomitant]
  5. NOVOLOG [Concomitant]
     Active Substance: INSULIN ASPART
  6. URSODIAL (URSODEOXYCHOLIC) [Concomitant]
  7. ONDANSETRON [Concomitant]
     Active Substance: ONDANSETRON
  8. SODIUM BICARBONATE. [Concomitant]
     Active Substance: SODIUM BICARBONATE
  9. LANTUS [Concomitant]
     Active Substance: INSULIN GLARGINE
  10. VELPHORO [Suspect]
     Active Substance: FERRIC OXYHYDROXIDE
     Indication: HYPERPHOSPHATAEMIA
     Dosage: 3 IN 1 D, ORAL
     Route: 048
     Dates: start: 20140917, end: 20140924
  11. FENTANYL. [Concomitant]
     Active Substance: FENTANYL
  12. DIAZEPAM. [Concomitant]
     Active Substance: DIAZEPAM
  13. VANCOMYCIN [Concomitant]
     Active Substance: VANCOMYCIN

REACTIONS (1)
  - Device colour issue [None]

NARRATIVE: CASE EVENT DATE: 201409
